FAERS Safety Report 18010483 (Version 1)
Quarter: 2020Q3

REPORT INFORMATION
  Report Type: Spontaneous
  Country: GB (occurrence: GB)
  Receive Date: 20200711
  Receipt Date: 20200711
  Transmission Date: 20201103
  Serious: Yes (Other)
  Sender: FDA-Public Use
  Company Number: NVSC2020GB191581

PATIENT
  Age: 60 Year
  Sex: Female

DRUGS (8)
  1. TRASTUZUMAB EMTANSINE [Suspect]
     Active Substance: ADO-TRASTUZUMAB EMTANSINE
     Indication: BREAST CANCER METASTATIC
     Dosage: 260 MG, TIW (ON 18 SEP 2018, DOSE OF TRASTUZUMAB EMTANSINE WAS REDUCED TO 200 MG)
     Route: 042
     Dates: start: 20171127
  2. DENOSUMAB [Concomitant]
     Active Substance: DENOSUMAB
     Indication: BREAST CANCER METASTATIC
     Dosage: 120 MG, TIW
     Route: 058
     Dates: start: 20161129
  3. DOCETAXEL. [Suspect]
     Active Substance: DOCETAXEL
     Indication: BREAST CANCER METASTATIC
     Dosage: 140 MG, TIW (ON 28 FEB 2017, DOSE WAS REDUCED TO 96 MG)
     Route: 042
     Dates: start: 20161130
  4. TRASTUZUMAB. [Suspect]
     Active Substance: TRASTUZUMAB
     Indication: BREAST CANCER METASTATIC
     Dosage: 588 MG, TIW (ON 20 DEC 2016, DOSE OF TRASTUZUMAB WAS REDUCED TO 420 MG)
     Route: 041
     Dates: start: 20161129, end: 20161129
  5. PERTUZUMAB. [Suspect]
     Active Substance: PERTUZUMAB
     Indication: BREAST CANCER METASTATIC
     Dosage: 588 MG, TIW (ON 20 DEC 2016, DOSE WAS REDUCED TO PERTUZUMAB (420 MG))
     Route: 042
     Dates: start: 20161129, end: 20161129
  6. TAZOCIN [Concomitant]
     Active Substance: PIPERACILLIN SODIUM\TAZOBACTAM SODIUM
     Indication: PRODUCT USED FOR UNKNOWN INDICATION
     Dosage: 4.5 G (0.25 DAY)
     Route: 042
     Dates: start: 20170211
  7. OMEPRAZOLE. [Concomitant]
     Active Substance: OMEPRAZOLE
     Indication: PRODUCT USED FOR UNKNOWN INDICATION
     Dosage: 40 MG, QD
     Route: 048
     Dates: start: 20170207
  8. ADCAL D3 [Concomitant]
     Active Substance: CALCIUM CARBONATE\CHOLECALCIFEROL
     Indication: PRODUCT USED FOR UNKNOWN INDICATION
     Dosage: 1.5 G, QD
     Route: 048

REACTIONS (1)
  - Hyperbilirubinaemia [Recovering/Resolving]

NARRATIVE: CASE EVENT DATE: 20200218
